FAERS Safety Report 7789755-6 (Version None)
Quarter: 2011Q3

REPORT INFORMATION
  Report Type: 
  Country: None (occurrence: None)
  Receive Date: 20110930
  Receipt Date: 20100924
  Transmission Date: 20111222
  Serious: No
  Sender: FDA-Public Use
  Company Number: US-ASTRAZENECA-2010SE45297

PATIENT
  Age: 72 Year
  Sex: Female

DRUGS (7)
  1. PRINIVIL [Concomitant]
  2. PRANDIN [Concomitant]
  3. ARIMIDEX [Suspect]
     Indication: BREAST CANCER
     Route: 048
     Dates: end: 20100824
  4. ASPIRIN [Concomitant]
  5. TENORMIN [Concomitant]
  6. ARIMIDEX [Suspect]
     Dosage: GENERIC
     Route: 048
     Dates: start: 20100824
  7. ACTOS [Concomitant]

REACTIONS (2)
  - PRODUCT SUBSTITUTION ISSUE [None]
  - DIARRHOEA [None]
